FAERS Safety Report 4524901-9 (Version None)
Quarter: 2004Q4

REPORT INFORMATION
  Report Type: 
  Country: None (occurrence: None)
  Receive Date: 20041213
  Receipt Date: 20041203
  Transmission Date: 20050328
  Serious: Yes (Death, Hospitalization, Other)
  Sender: FDA-Public Use
  Company Number: 200421851GDDC

PATIENT
  Sex: Female

DRUGS (4)
  1. TAXOTERE [Suspect]
     Indication: BREAST CANCER METASTATIC
     Dosage: DOSE: UNK
  2. HERCEPTIN [Suspect]
     Indication: BREAST CANCER METASTATIC
     Dosage: DOSE: UNK
  3. CLODRONIC ACID [Concomitant]
  4. TIMONACIC [Concomitant]

REACTIONS (9)
  - DERMATITIS EXFOLIATIVE [None]
  - DISSEMINATED INTRAVASCULAR COAGULATION [None]
  - NEUTROPENIA [None]
  - RESPIRATORY FAILURE [None]
  - SHOCK [None]
  - SKIN BACTERIAL INFECTION [None]
  - SKIN HYPERPIGMENTATION [None]
  - SKIN REACTION [None]
  - THROMBOCYTOPENIA [None]
